FAERS Safety Report 23876256 (Version 1)
Quarter: 2024Q2

REPORT INFORMATION
  Report Type: Report from Study
  Country: US (occurrence: US)
  Receive Date: 20240520
  Receipt Date: 20240520
  Transmission Date: 20240716
  Serious: Yes (Hospitalization)
  Sender: FDA-Public Use
  Company Number: US-JNJFOC-20240534397

PATIENT
  Age: 77 Year
  Sex: Female

DRUGS (1)
  1. SPRAVATO [Suspect]
     Active Substance: ESKETAMINE
     Indication: Depression
     Dates: end: 202404

REACTIONS (2)
  - Kidney infection [Unknown]
  - Haematological infection [Unknown]

NARRATIVE: CASE EVENT DATE: 20240401
